FAERS Safety Report 25811632 (Version 1)
Quarter: 2025Q3

REPORT INFORMATION
  Report Type: Spontaneous
  Country: AU (occurrence: AU)
  Receive Date: 20250917
  Receipt Date: 20250917
  Transmission Date: 20251021
  Serious: Yes (Hospitalization)
  Sender: CHEPLAPHARM
  Company Number: AU-CHEPLA-2025010762

PATIENT
  Age: 57 Year
  Sex: Male

DRUGS (1)
  1. OLANZAPINE [Suspect]
     Active Substance: OLANZAPINE

REACTIONS (1)
  - Post-injection delirium sedation syndrome [Recovered/Resolved]
